FAERS Safety Report 19005453 (Version 1)
Quarter: 2021Q1

REPORT INFORMATION
  Report Type: Spontaneous
  Country: JP (occurrence: JP)
  Receive Date: 20210313
  Receipt Date: 20210313
  Transmission Date: 20210420
  Serious: Yes (Other)
  Sender: FDA-Public Use
  Company Number: NVSJ2020JP014563

PATIENT
  Age: 56 Year
  Sex: Male

DRUGS (3)
  1. BEOVU [Suspect]
     Active Substance: BROLUCIZUMAB-DBLL
     Dosage: 6 MG
     Route: 031
  2. BEOVU [Suspect]
     Active Substance: BROLUCIZUMAB-DBLL
     Dosage: 6 MG
     Route: 031
     Dates: start: 20201210, end: 20201210
  3. BEOVU [Suspect]
     Active Substance: BROLUCIZUMAB-DBLL
     Indication: NEOVASCULAR AGE-RELATED MACULAR DEGENERATION
     Dosage: 6 MG
     Route: 031

REACTIONS (10)
  - Iritis [Recovering/Resolving]
  - Glaucoma [Recovered/Resolved]
  - Anterior chamber cell [Unknown]
  - Intraocular pressure increased [Recovering/Resolving]
  - Ocular hyperaemia [Recovering/Resolving]
  - Abnormal sensation in eye [Unknown]
  - Vitreous floaters [Recovering/Resolving]
  - Keratic precipitates [Unknown]
  - Iritis [Recovered/Resolved]
  - Anterior chamber flare [Unknown]

NARRATIVE: CASE EVENT DATE: 20201224
